FAERS Safety Report 18110714 (Version 1)
Quarter: 2020Q3

REPORT INFORMATION
  Report Type: Spontaneous
  Country: US (occurrence: US)
  Receive Date: 20200805
  Receipt Date: 20200805
  Transmission Date: 20201103
  Serious: Yes (Hospitalization, Other)
  Sender: FDA-Public Use
  Company Number: US-CELGENEUS-USA-20200708605

PATIENT
  Sex: Male
  Weight: 100.79 kg

DRUGS (1)
  1. REVLIMID [Suspect]
     Active Substance: LENALIDOMIDE
     Indication: PLASMA CELL MYELOMA
     Dosage: 25 MILLIGRAM
     Route: 048
     Dates: start: 201912, end: 202001

REACTIONS (5)
  - Thrombosis [Unknown]
  - Conjunctivitis [Unknown]
  - Dry eye [Unknown]
  - Oral pain [Unknown]
  - Pneumonia [Unknown]
